FAERS Safety Report 16852962 (Version 1)
Quarter: 2019Q3

REPORT INFORMATION
  Report Type: Spontaneous
  Country: US (occurrence: US)
  Receive Date: 20190802
  Receipt Date: 20190802
  Transmission Date: 20191005
  Serious: Yes (Hospitalization)
  Sender: FDA-Public Use
  Company Number: None

PATIENT
  Age: 34 Year
  Sex: Female

DRUGS (17)
  1. METHOTREXATE. [Suspect]
     Active Substance: METHOTREXATE
     Indication: NEOPLASM MALIGNANT
     Route: 042
     Dates: start: 20190508, end: 20190508
  2. RITUXIMAB. [Concomitant]
     Active Substance: RITUXIMAB
  3. ACETAMINOPHEN. [Concomitant]
     Active Substance: ACETAMINOPHEN
  4. FAMOTIDINE. [Concomitant]
     Active Substance: FAMOTIDINE
  5. ESCITALOPRAM [Concomitant]
     Active Substance: ESCITALOPRAM OXALATE
  6. LEUCOVORIN. [Concomitant]
     Active Substance: LEUCOVORIN
  7. ATOVAQUONE. [Concomitant]
     Active Substance: ATOVAQUONE
  8. DIPHENHYDRAMINE. [Concomitant]
     Active Substance: DIPHENHYDRAMINE
  9. ENOXAPARIN [Concomitant]
     Active Substance: ENOXAPARIN
  10. SODIUM BICARBONATE. [Concomitant]
     Active Substance: SODIUM BICARBONATE
  11. TEMOZOLOMIDE. [Concomitant]
     Active Substance: TEMOZOLOMIDE
  12. DEXAMETHASONE. [Concomitant]
     Active Substance: DEXAMETHASONE
  13. DOCUSATE [Concomitant]
     Active Substance: DOCUSATE
  14. PROCHLORPERAZINE. [Concomitant]
     Active Substance: PROCHLORPERAZINE
  15. PROPOFOL. [Concomitant]
     Active Substance: PROPOFOL
  16. ONDANSETRON [Concomitant]
     Active Substance: ONDANSETRON
  17. SENNA [Concomitant]
     Active Substance: SENNA LEAF\SENNOSIDES\SENNOSIDES A AND B

REACTIONS (3)
  - Transaminases increased [None]
  - Acute kidney injury [None]
  - Toxicity to various agents [None]

NARRATIVE: CASE EVENT DATE: 20190510
